FAERS Safety Report 12571135 (Version 1)
Quarter: 2016Q3

REPORT INFORMATION
  Report Type: Spontaneous
  Country: AU (occurrence: AU)
  Receive Date: 20160719
  Receipt Date: 20160719
  Transmission Date: 20161109
  Serious: Yes (Disabling)
  Sender: FDA-Public Use
  Company Number: AU-OTSUKA-2016_017391

PATIENT
  Age: 36 Year
  Sex: Male

DRUGS (1)
  1. ABILIFY MAINTENA [Suspect]
     Active Substance: ARIPIPRAZOLE
     Indication: SCHIZOPHRENIA
     Dosage: UNK
     Route: 065

REACTIONS (4)
  - Gambling disorder [Unknown]
  - Hypersexuality [Unknown]
  - Disturbance in attention [Unknown]
  - Obsessive-compulsive disorder [Unknown]
